FAERS Safety Report 13003220 (Version 1)
Quarter: 2016Q4

REPORT INFORMATION
  Report Type: Spontaneous
  Country: US (occurrence: US)
  Receive Date: 20161206
  Receipt Date: 20161206
  Transmission Date: 20170207
  Serious: No
  Sender: FDA-Public Use
  Company Number: US-TARO-2016TAR00309

PATIENT
  Sex: Female

DRUGS (2)
  1. FLUOROURACIL TOPICAL SOLUTION USP 2% [Suspect]
     Active Substance: FLUOROURACIL
     Indication: SKIN CANCER
     Dosage: UNK
     Route: 061
  2. FLUOROURACIL TOPICAL SOLUTION USP 2% [Suspect]
     Active Substance: FLUOROURACIL
     Dosage: UNK
     Route: 061

REACTIONS (2)
  - Off label use [Unknown]
  - Skin lesion [Not Recovered/Not Resolved]
